FAERS Safety Report 6100644-5 (Version None)
Quarter: 2009Q1

REPORT INFORMATION
  Report Type: 
  Country: None (occurrence: None)
  Receive Date: 20090303
  Receipt Date: 20090219
  Transmission Date: 20090719
  Serious: Yes (Other)
  Sender: FDA-Public Use
  Company Number: US-PFIZER INC-2009173523

PATIENT
  Sex: Male
  Weight: 88.435 kg

DRUGS (10)
  1. LYRICA [Suspect]
     Indication: NEURALGIA
     Dosage: 75 MG, 1X/DAY
     Dates: start: 20080201
  2. INSULIN [Concomitant]
     Dosage: UNK
  3. LANTUS [Concomitant]
     Dosage: UNK
  4. CLONIDINE [Concomitant]
     Dosage: UNK
  5. GEMFIBROZIL [Concomitant]
     Dosage: UNK
  6. ZANTAC [Concomitant]
     Indication: GASTROOESOPHAGEAL REFLUX DISEASE
     Dosage: UNK
  7. HYDROCHLOROTHIAZIDE [Concomitant]
     Dosage: UNK
  8. XALATAN [Concomitant]
     Indication: GLAUCOMA
     Dosage: UNK
  9. AMLODIPINE [Concomitant]
     Dosage: UNK
  10. LEXAPRO [Concomitant]
     Dosage: UNK

REACTIONS (2)
  - OPIATES POSITIVE [None]
  - TOE AMPUTATION [None]
